FAERS Safety Report 15463798 (Version 3)
Quarter: 2023Q4

REPORT INFORMATION
  Report Type: Report from Study
  Country: PT (occurrence: PT)
  Receive Date: 20181004
  Receipt Date: 20231129
  Transmission Date: 20240109
  Serious: Yes (Life-Threatening, Other)
  Sender: FDA-Public Use
  Company Number: PT-ASTELLAS-2018US042636

PATIENT
  Age: 30 Year
  Sex: Male

DRUGS (39)
  1. AMPHOTERICIN B [Suspect]
     Active Substance: AMPHOTERICIN B
     Indication: HIV infection
     Dosage: UNK UNK, UNKNOWN FREQ.
     Route: 065
  2. AMPHOTERICIN B [Suspect]
     Active Substance: AMPHOTERICIN B
     Indication: Hepatitis C
     Dosage: UNK UNK, UNKNOWN FREQ. (1 ML OF TRIAMCINOLONE 40 MG INJECTED)
     Route: 065
  3. AMPHOTERICIN B [Suspect]
     Active Substance: AMPHOTERICIN B
     Indication: Chronic hepatitis C
  4. ALPRAZOLAM [Suspect]
     Active Substance: ALPRAZOLAM
     Indication: Chronic hepatitis C
     Dosage: UNK UNK, UNKNOWN FREQ.
     Route: 065
  5. ALPRAZOLAM [Suspect]
     Active Substance: ALPRAZOLAM
     Indication: HIV infection
     Dosage: UNK UNK, UNKNOWN FREQ. (1 ML OF TRIAMCINOLONE 40 MG INJECTED)
     Route: 048
  6. ALPRAZOLAM [Suspect]
     Active Substance: ALPRAZOLAM
     Indication: Hepatitis C
  7. ZIDOVUDINE [Suspect]
     Active Substance: ZIDOVUDINE
     Indication: Chronic hepatitis C
     Dosage: UNK UNK, UNKNOWN FREQ.
     Route: 048
  8. ZIDOVUDINE [Suspect]
     Active Substance: ZIDOVUDINE
     Indication: HIV infection
  9. ZIDOVUDINE [Suspect]
     Active Substance: ZIDOVUDINE
     Indication: Hepatitis C
  10. ZIDOVUDINE [Suspect]
     Active Substance: ZIDOVUDINE
     Indication: HIV infection CDC category C
  11. BUPRENORPHINE [Suspect]
     Active Substance: BUPRENORPHINE
     Indication: Chronic hepatitis C
     Dosage: UNK UNK, UNKNOWN FREQ.
     Route: 065
  12. BUPRENORPHINE [Suspect]
     Active Substance: BUPRENORPHINE
     Indication: HIV infection
     Dosage: UNK UNK, UNKNOWN FREQ. (1 ML OF TRIAMCINOLONE 40MG INJECTED)
     Route: 065
  13. BUPRENORPHINE [Suspect]
     Active Substance: BUPRENORPHINE
     Indication: Hepatitis C
  14. FLURAZEPAM [Suspect]
     Active Substance: FLURAZEPAM HYDROCHLORIDE
     Indication: Chronic hepatitis C
     Dosage: UNK UNK, UNKNOWN FREQ.
     Route: 065
  15. FLURAZEPAM [Suspect]
     Active Substance: FLURAZEPAM HYDROCHLORIDE
     Indication: HIV infection
     Dosage: UNK UNK, UNKNOWN FREQ. (1 ML OF TRIAMCINOLONE 40 MG INJECTED)
     Route: 065
  16. FLURAZEPAM [Suspect]
     Active Substance: FLURAZEPAM HYDROCHLORIDE
     Indication: Hepatitis C
  17. TRAMADOL [Suspect]
     Active Substance: TRAMADOL\TRAMADOL HYDROCHLORIDE
     Indication: Chronic hepatitis C
     Dosage: UNK UNK, UNKNOWN FREQ. (1 ML OF TRIAMCINOLONE 40 MG INJECTED)
     Route: 065
  18. TRAMADOL [Suspect]
     Active Substance: TRAMADOL\TRAMADOL HYDROCHLORIDE
     Indication: HIV infection
     Dosage: UNK UNK, UNKNOWN FREQ.
     Route: 065
  19. TRAMADOL [Suspect]
     Active Substance: TRAMADOL\TRAMADOL HYDROCHLORIDE
     Indication: Hepatitis C
  20. DIDANOSINE [Suspect]
     Active Substance: DIDANOSINE
     Indication: Chronic hepatitis C
     Dosage: UNK UNK, UNKNOWN FREQ.
     Route: 065
  21. DIDANOSINE [Suspect]
     Active Substance: DIDANOSINE
     Indication: HIV infection
     Dosage: UNK UNK, UNKNOWN FREQ. (1ML OF TRIAMCINOLONE 40 MG INJECTED)
     Route: 065
  22. DIDANOSINE [Suspect]
     Active Substance: DIDANOSINE
     Indication: HIV infection CDC category C
     Dosage: UNK UNK, UNKNOWN FREQ.
     Route: 048
  23. DIDANOSINE [Suspect]
     Active Substance: DIDANOSINE
     Indication: Hepatitis C
  24. LOPINAVIR\RITONAVIR [Suspect]
     Active Substance: LOPINAVIR\RITONAVIR
     Indication: Chronic hepatitis C
     Dosage: UNK UNK, UNKNOWN FREQ. (1 ML OF TRIAMCINOLONE 40MG INJECTED)
     Route: 065
  25. LOPINAVIR\RITONAVIR [Suspect]
     Active Substance: LOPINAVIR\RITONAVIR
     Indication: HIV infection
     Dosage: UNK UNK, UNKNOWN FREQ.
     Route: 065
  26. LOPINAVIR\RITONAVIR [Suspect]
     Active Substance: LOPINAVIR\RITONAVIR
     Indication: HIV infection CDC category C
     Dosage: UNK UNK, UNKNOWN FREQ.
     Route: 048
  27. LOPINAVIR\RITONAVIR [Suspect]
     Active Substance: LOPINAVIR\RITONAVIR
     Indication: Hepatitis C
  28. OXAZEPAM [Suspect]
     Active Substance: OXAZEPAM
     Indication: Product used for unknown indication
     Dosage: UNK UNK, UNKNOWN FREQ. (1 ML OF TRIAMCINOLONE 40MG INJECTED)
     Route: 065
  29. OXAZEPAM [Suspect]
     Active Substance: OXAZEPAM
     Dosage: UNK UNK, UNKNOWN FREQ. (1 ML OF TRIAMCINOLONE 40MG INJECTED)
     Route: 048
  30. TRIAMCINOLONE [Suspect]
     Active Substance: TRIAMCINOLONE
     Indication: Product used for unknown indication
     Dosage: UNK UNK, UNKNOWN FREQ. (1 ML OF TRIAMCINOLONE 40 INJECTED)
     Route: 065
  31. AMPHOTERICIN B [Suspect]
     Active Substance: AMPHOTERICIN B
     Indication: HIV infection
     Dosage: UNK UNK, UNKNOWN FREQ.
     Route: 065
  32. AMPHOTERICIN B [Suspect]
     Active Substance: AMPHOTERICIN B
     Indication: Hepatitis C
     Dosage: UNK UNK, UNKNOWN FREQ. (1 ML OF TRIAMCINOLONE 40 MG INJECTED)
     Route: 065
  33. AMPHOTERICIN B [Suspect]
     Active Substance: AMPHOTERICIN B
     Indication: Chronic hepatitis C
  34. BUPRENORPHINE HYDROCHLORIDE [Suspect]
     Active Substance: BUPRENORPHINE HYDROCHLORIDE
     Indication: Chronic hepatitis C
     Dosage: UNK UNK, UNKNOWN FREQ.
     Route: 048
  35. BUPRENORPHINE HYDROCHLORIDE [Suspect]
     Active Substance: BUPRENORPHINE HYDROCHLORIDE
     Indication: Hepatitis C
  36. BUPRENORPHINE HYDROCHLORIDE [Suspect]
     Active Substance: BUPRENORPHINE HYDROCHLORIDE
     Indication: HIV infection
  37. TRAMADOL HYDROCHLORIDE [Suspect]
     Active Substance: TRAMADOL HYDROCHLORIDE
     Indication: Chronic hepatitis C
     Dosage: UNK UNK, UNKNOWN FREQ. (1 ML OF TRIAMCINOLONE 40 INJECTED)
     Route: 048
  38. TRAMADOL HYDROCHLORIDE [Suspect]
     Active Substance: TRAMADOL HYDROCHLORIDE
     Indication: Hepatitis C
  39. TRAMADOL HYDROCHLORIDE [Suspect]
     Active Substance: TRAMADOL HYDROCHLORIDE
     Indication: HIV infection

REACTIONS (2)
  - Drug-induced liver injury [Unknown]
  - Hepatic fibrosis [Unknown]
